FAERS Safety Report 8986793 (Version 1)
Quarter: 2012Q4

REPORT INFORMATION
  Report Type: 
  Country: CN (occurrence: CN)
  Receive Date: 20121226
  Receipt Date: 20121226
  Transmission Date: 20130627
  Serious: Yes (Other)
  Sender: FDA-Public Use
  Company Number: CN-MYLANLABS-2012S1025715

PATIENT
  Age: 8 Year
  Sex: Male

DRUGS (3)
  1. LEVETIRACETAM [Suspect]
     Indication: JUVENILE MYOCLONIC EPILEPSY
     Dosage: 250 mg/d
  2. LEVETIRACETAM [Suspect]
     Indication: JUVENILE MYOCLONIC EPILEPSY
     Dosage: 500 mg/d
  3. SODIUM VALPROATE [Concomitant]
     Indication: JUVENILE MYOCLONIC EPILEPSY
     Dosage: 500 mg/d

REACTIONS (1)
  - Myoclonic epilepsy [Recovered/Resolved]
